FAERS Safety Report 14143238 (Version 2)
Quarter: 2017Q4

REPORT INFORMATION
  Report Type: Spontaneous
  Country: RU (occurrence: RU)
  Receive Date: 20171030
  Receipt Date: 20171031
  Transmission Date: 20180321
  Serious: Yes (Other)
  Sender: FDA-Public Use
  Company Number: PHHY2017RU159689

PATIENT
  Age: 9 Year
  Sex: Female

DRUGS (2)
  1. BUDESONIDE. [Suspect]
     Active Substance: BUDESONIDE
     Indication: ASTHMA
     Dosage: 160 UG, QD
     Route: 065
  2. FORMOTEROL [Suspect]
     Active Substance: FORMOTEROL
     Indication: ASTHMA
     Dosage: 8 UG, BID
     Route: 065

REACTIONS (7)
  - Productive cough [Recovering/Resolving]
  - Nasal obstruction [Recovering/Resolving]
  - Bronchopulmonary aspergillosis allergic [Recovering/Resolving]
  - Dyspnoea [Recovering/Resolving]
  - Sputum purulent [Recovering/Resolving]
  - Bronchial obstruction [Recovering/Resolving]
  - Rhinitis [Recovering/Resolving]

NARRATIVE: CASE EVENT DATE: 201602
